FAERS Safety Report 14377970 (Version 2)
Quarter: 2018Q1

REPORT INFORMATION
  Report Type: Spontaneous
  Country: GB (occurrence: GB)
  Receive Date: 20180111
  Receipt Date: 20180220
  Transmission Date: 20180509
  Serious: Yes (Other)
  Sender: FDA-Public Use
  Company Number: GB-GE HEALTHCARE LIFE SCIENCES-2017CSU003902

PATIENT

DRUGS (1)
  1. OMNIPAQUE [Suspect]
     Active Substance: IOHEXOL
     Indication: PRODUCT USED FOR UNKNOWN INDICATION
     Dosage: UNK, SINGLE
     Route: 065
     Dates: start: 20160229, end: 20160229

REACTIONS (23)
  - Mobility decreased [Unknown]
  - Gait disturbance [Unknown]
  - Paraesthesia [Not Recovered/Not Resolved]
  - Feeling abnormal [Unknown]
  - Dizziness [Unknown]
  - Discomfort [Not Recovered/Not Resolved]
  - Rash [Recovered/Resolved]
  - Skin discolouration [Not Recovered/Not Resolved]
  - Burning sensation [Not Recovered/Not Resolved]
  - Retching [Unknown]
  - Cognitive disorder [Unknown]
  - Confusional state [Unknown]
  - Dysgeusia [Recovered/Resolved]
  - Circulatory collapse [Unknown]
  - Body temperature abnormal [Unknown]
  - Body temperature increased [Unknown]
  - Hypoaesthesia [Not Recovered/Not Resolved]
  - Feeling hot [Recovered/Resolved]
  - Blood pressure abnormal [Unknown]
  - Nausea [Unknown]
  - Dysuria [Unknown]
  - Malaise [Not Recovered/Not Resolved]
  - Pain [Not Recovered/Not Resolved]

NARRATIVE: CASE EVENT DATE: 20160229
